FAERS Safety Report 5850563-4 (Version None)
Quarter: 2008Q3

REPORT INFORMATION
  Report Type: 
  Country: None (occurrence: None)
  Receive Date: 20080820
  Receipt Date: 20080815
  Transmission Date: 20090109
  Serious: Yes (Death, Life-Threatening, Hospitalization, Disabling, Other)
  Sender: FDA-Public Use
  Company Number: NSADSS2002025716

PATIENT
  Sex: Male
  Weight: 92.08 kg

DRUGS (6)
  1. REMICADE [Suspect]
     Route: 041
     Dates: start: 19990417
  2. REMICADE [Suspect]
     Indication: CROHN'S DISEASE
     Route: 041
     Dates: start: 19990417
  3. MERCAPTOPURINE [Suspect]
     Dates: end: 20020512
  4. MERCAPTOPURINE [Suspect]
     Indication: CROHN'S DISEASE
     Dates: end: 20020512
  5. MESALAMINE [Suspect]
     Indication: CROHN'S DISEASE
  6. PREDNISONE TAB [Concomitant]

REACTIONS (1)
  - T-CELL LYMPHOMA [None]
